FAERS Safety Report 5752769-1 (Version None)
Quarter: 2008Q2

REPORT INFORMATION
  Report Type: 
  Country: None (occurrence: None)
  Receive Date: 20080529
  Receipt Date: 20080522
  Transmission Date: 20081010
  Serious: Yes (Other)
  Sender: FDA-Public Use
  Company Number: US-PFIZER INC-2008044565

PATIENT
  Sex: Female
  Weight: 61.2 kg

DRUGS (2)
  1. XALATAN [Suspect]
     Indication: GLAUCOMA
     Dosage: TEXT:1 DROP IN EACH EYE
     Route: 047
  2. KLONOPIN [Concomitant]

REACTIONS (5)
  - EYE DISORDER [None]
  - HEADACHE [None]
  - INTRAOCULAR PRESSURE INCREASED [None]
  - OCULAR DISCOMFORT [None]
  - VISION BLURRED [None]
